FAERS Safety Report 9927757 (Version 1)
Quarter: 2014Q1

REPORT INFORMATION
  Report Type: Report from Study
  Country: US (occurrence: US)
  Receive Date: 20140227
  Receipt Date: 20140227
  Transmission Date: 20141002
  Serious: Yes (Death)
  Sender: FDA-Public Use
  Company Number: US-ROCHE-1353009

PATIENT
  Age: 32 Year
  Sex: Female
  Weight: 38.14 kg

DRUGS (1)
  1. PEGASYS [Suspect]
     Indication: CHRONIC HEPATITIS C
     Route: 065
     Dates: start: 20130816

REACTIONS (7)
  - Oesophageal rupture [Fatal]
  - Epistaxis [Unknown]
  - Nasal discharge discolouration [Unknown]
  - Visual acuity reduced [Unknown]
  - Alopecia [Unknown]
  - Pain [Unknown]
  - Food craving [Unknown]
